FAERS Safety Report 18192882 (Version 1)
Quarter: 2020Q3

REPORT INFORMATION
  Report Type: Spontaneous
  Country: US (occurrence: US)
  Receive Date: 20200825
  Receipt Date: 20200825
  Transmission Date: 20201103
  Serious: No
  Sender: FDA-Public Use
  Company Number: US-ACCORD-186143

PATIENT
  Age: 52 Year
  Sex: Female
  Weight: 54.43 kg

DRUGS (1)
  1. BUPROPION ACCORD [Suspect]
     Active Substance: BUPROPION HYDROCHLORIDE
     Indication: DEPRESSION
     Dosage: STRENGTH 300 MG X 90 DAY SUPPLY

REACTIONS (4)
  - Gastrooesophageal reflux disease [Recovered/Resolved]
  - Hot flush [Not Recovered/Not Resolved]
  - Product substitution issue [Unknown]
  - Illness [Recovered/Resolved]
